FAERS Safety Report 19623781 (Version 2)
Quarter: 2022Q3

REPORT INFORMATION
  Report Type: Spontaneous
  Country: US (occurrence: US)
  Receive Date: 20210729
  Receipt Date: 20220830
  Transmission Date: 20221027
  Serious: Yes (Other)
  Sender: FDA-Public Use
  Company Number: US-SA-2021SA249680

PATIENT
  Age: 56 Year
  Sex: Male

DRUGS (1)
  1. ZANTAC [Suspect]
     Active Substance: RANITIDINE HYDROCHLORIDE
     Indication: Gastric ulcer
     Dosage: 150 MG, QD
     Route: 065
     Dates: start: 200311, end: 201909

REACTIONS (1)
  - Non-Hodgkin^s lymphoma stage IV [Unknown]

NARRATIVE: CASE EVENT DATE: 20190901
